FAERS Safety Report 15058646 (Version 3)
Quarter: 2018Q3

REPORT INFORMATION
  Report Type: Report from Study
  Country: CZ (occurrence: CZ)
  Receive Date: 20180625
  Receipt Date: 20180710
  Transmission Date: 20181010
  Serious: Yes (Hospitalization)
  Sender: FDA-Public Use
  Company Number: PHHO2018CZ007543

PATIENT
  Age: 72 Year
  Sex: Male
  Weight: 61 kg

DRUGS (5)
  1. LBH589 [Suspect]
     Active Substance: PANOBINOSTAT
     Dosage: 20 MG, TIW
     Route: 048
     Dates: start: 20160919, end: 20180608
  2. DEXAMETHASONE. [Suspect]
     Active Substance: DEXAMETHASONE
     Indication: PLASMA CELL MYELOMA
     Dosage: 20 MG, OT
     Route: 048
     Dates: start: 20160919, end: 20180409
  3. BORTEZOMIB. [Suspect]
     Active Substance: BORTEZOMIB
     Dosage: 1 MG/M2, BIW
     Route: 058
     Dates: start: 20180625
  4. BORTEZOMIB. [Suspect]
     Active Substance: BORTEZOMIB
     Dosage: 1.3 MG/M2, BIW
     Route: 058
     Dates: start: 20160919, end: 20180604
  5. LBH589 [Suspect]
     Active Substance: PANOBINOSTAT
     Dosage: 20 MG, TIW
     Route: 048
     Dates: start: 20180625

REACTIONS (1)
  - Atrial flutter [Recovering/Resolving]

NARRATIVE: CASE EVENT DATE: 20180618
